FAERS Safety Report 13118165 (Version 3)
Quarter: 2017Q2

REPORT INFORMATION
  Report Type: Spontaneous
  Country: US (occurrence: US)
  Receive Date: 20170116
  Receipt Date: 20170607
  Transmission Date: 20170830
  Serious: No
  Sender: FDA-Public Use
  Company Number: US-JNJFOC-20161217264

PATIENT
  Sex: Male

DRUGS (2)
  1. RIPSERDAL [Suspect]
     Active Substance: RISPERIDONE
     Indication: ABNORMAL BEHAVIOUR
     Route: 048
     Dates: start: 20000228, end: 20031203
  2. RIPSERDAL [Suspect]
     Active Substance: RISPERIDONE
     Indication: DEPRESSION
     Route: 048
     Dates: start: 20000228, end: 20031203

REACTIONS (4)
  - Galactorrhoea [Unknown]
  - Emotional disorder [Unknown]
  - Gynaecomastia [Unknown]
  - Hyperprolactinaemia [Unknown]
